FAERS Safety Report 6541193-X (Version None)
Quarter: 2010Q1

REPORT INFORMATION
  Report Type: 
  Country: None (occurrence: None)
  Receive Date: 20100118
  Receipt Date: 20100108
  Transmission Date: 20100710
  Serious: Yes (Other)
  Sender: FDA-Public Use
  Company Number: B0625198A

PATIENT
  Sex: Female

DRUGS (4)
  1. PAXIL [Suspect]
     Indication: DRUG USE FOR UNKNOWN INDICATION
     Route: 048
  2. WYPAX [Concomitant]
     Route: 048
  3. SOLANAX [Concomitant]
     Route: 048
  4. MYSLEE [Concomitant]
     Route: 048

REACTIONS (2)
  - DIPLOPIA [None]
  - VISUAL ACUITY REDUCED [None]
